FAERS Safety Report 5639227-X (Version None)
Quarter: 2008Q1

REPORT INFORMATION
  Report Type: 
  Country: None (occurrence: None)
  Receive Date: 20080226
  Receipt Date: 20080220
  Transmission Date: 20080703
  Serious: Yes (Death, Hospitalization)
  Sender: FDA-Public Use
  Company Number: US-BOEHRINGER INGELHEIM GMBH, GERMANY-2008-DE-01105GD

PATIENT
  Sex: Male

DRUGS (4)
  1. PRAMIPEXOLE DIHYDROCHLORIDE [Suspect]
     Indication: PARKINSON'S DISEASE
  2. PRAMIPEXOLE DIHYDROCHLORIDE [Suspect]
     Route: 048
  3. CARBIDOPA AND LEVODOPA [Suspect]
     Indication: PARKINSON'S DISEASE
  4. CARBIDOPA AND LEVODOPA [Suspect]
     Dosage: 75/300 (CARBIDOPA/LEVODOPA)
     Route: 048

REACTIONS (7)
  - ABDOMINAL DISCOMFORT [None]
  - IMPAIRED GASTRIC EMPTYING [None]
  - MULTI-ORGAN FAILURE [None]
  - NAUSEA [None]
  - PNEUMONIA ASPIRATION [None]
  - SEPSIS [None]
  - VOMITING [None]
